FAERS Safety Report 16866402 (Version 1)
Quarter: 2019Q3

REPORT INFORMATION
  Report Type: Spontaneous
  Country: US (occurrence: US)
  Receive Date: 20190806
  Receipt Date: 20190806
  Transmission Date: 20191007
  Serious: No
  Sender: FDA-Public Use
  Company Number: None

PATIENT
  Age: 40 Year

DRUGS (1)
  1. CBD OIL: 7MG CBD/1ML [Suspect]
     Active Substance: CANNABIDIOL\HERBALS

REACTIONS (2)
  - Condition aggravated [None]
  - Therapeutic product ineffective for unapproved indication [None]
